FAERS Safety Report 4627799-3 (Version None)
Quarter: 2005Q2

REPORT INFORMATION
  Report Type: 
  Country: None (occurrence: None)
  Receive Date: 20050401
  Receipt Date: 20050322
  Transmission Date: 20051028
  Serious: Yes (Hospitalization)
  Sender: FDA-Public Use
  Company Number: 2005048220

PATIENT
  Age: 68 Year
  Sex: Female

DRUGS (3)
  1. XALATAN [Suspect]
     Indication: ILL-DEFINED DISORDER
     Dosage: 1 IN 1 D, OPHTHALMIC
     Route: 047
     Dates: start: 20000101
  2. AMLODIPINE [Concomitant]
  3. LANSOPRAZOLE [Concomitant]

REACTIONS (2)
  - BLADDER DISORDER [None]
  - HYSTERECTOMY [None]
